FAERS Safety Report 9529083 (Version 1)
Quarter: 2013Q1

REPORT INFORMATION
  Report Type: Spontaneous
  Country: US (occurrence: None)
  Receive Date: 20130318
  Receipt Date: 20130318
  Transmission Date: 20140127
  Serious: Yes (Hospitalization)
  Sender: FDA-Public Use
  Company Number: 163-21660-12051310

PATIENT
  Age: 62 Year
  Sex: Female
  Weight: 57.15 kg

DRUGS (5)
  1. ABRAXANE [Suspect]
     Indication: PANCREATIC CARCINOMA
     Route: 042
     Dates: start: 20120416, end: 20120416
  2. GEMCITABINE [Suspect]
     Indication: PANCREATIC CARCINOMA
     Route: 042
     Dates: start: 20120416, end: 20120416
  3. LOMOTIL [Concomitant]
  4. SANDOSTATIN (OCTREOTIDE ACETATE) [Concomitant]
  5. DECADRON (DEXAMETHASONE) [Concomitant]

REACTIONS (2)
  - Nausea [None]
  - Vomiting [None]
